FAERS Safety Report 21027377 (Version 2)
Quarter: 2022Q3

REPORT INFORMATION
  Report Type: Spontaneous
  Country: US (occurrence: US)
  Receive Date: 20220630
  Receipt Date: 20220714
  Transmission Date: 20221026
  Serious: No
  Sender: FDA-Public Use
  Company Number: US-PFIZER INC-202200845476

PATIENT
  Age: 26 Year
  Sex: Female

DRUGS (1)
  1. DEPO-PROVERA [Suspect]
     Active Substance: MEDROXYPROGESTERONE ACETATE
     Dosage: 104 MG (EVERY THREE MONTHS)
     Route: 058

REACTIONS (2)
  - Drug dose omission by device [Unknown]
  - Device issue [Unknown]
